FAERS Safety Report 17791816 (Version 7)
Quarter: 2021Q2

REPORT INFORMATION
  Report Type: Spontaneous
  Country: ES (occurrence: ES)
  Receive Date: 20200515
  Receipt Date: 20210616
  Transmission Date: 20210716
  Serious: Yes (Other)
  Sender: FDA-Public Use
  Company Number: NVSC2020ES131267

PATIENT
  Age: 78 Year
  Sex: Male

DRUGS (22)
  1. LEVOFLOXACIN. [Suspect]
     Active Substance: LEVOFLOXACIN
     Indication: STAPHYLOCOCCAL INFECTION
     Dosage: 25 MG, UNKNOWN
     Route: 042
  2. AMIKACIN. [Concomitant]
     Active Substance: AMIKACIN
     Indication: PSEUDOMONAS INFECTION
  3. LEVOFLOXACIN. [Suspect]
     Active Substance: LEVOFLOXACIN
     Indication: PSEUDOMONAS INFECTION
     Dosage: 1 MG, UNKNOWN
     Route: 042
  4. LEVOFLOXACIN. [Suspect]
     Active Substance: LEVOFLOXACIN
     Dosage: 0.25 MG, UNKNOWN
     Route: 042
  5. LEVOFLOXACIN. [Suspect]
     Active Substance: LEVOFLOXACIN
     Dosage: 125 MG, UNKNOWN
     Route: 042
  6. LEVOFLOXACIN. [Suspect]
     Active Substance: LEVOFLOXACIN
     Indication: INFECTION
  7. AMIKACIN. [Concomitant]
     Active Substance: AMIKACIN
     Indication: STAPHYLOCOCCAL INFECTION
  8. CEFTAZIDIME. [Concomitant]
     Active Substance: CEFTAZIDIME
     Indication: INFECTION
  9. LEVOFLOXACIN. [Suspect]
     Active Substance: LEVOFLOXACIN
     Dosage: 0.05 MG, UNKNOWN
     Route: 042
  10. LEVOFLOXACIN. [Suspect]
     Active Substance: LEVOFLOXACIN
     Indication: PSEUDOMONAS INFECTION
     Dosage: 10 MG, UNKNOWN
     Route: 048
  11. LEVOFLOXACIN. [Suspect]
     Active Substance: LEVOFLOXACIN
     Indication: OSTEOMYELITIS
     Dosage: 250 UNK
     Route: 048
  12. CEFTAZIDIME. [Concomitant]
     Active Substance: CEFTAZIDIME
     Indication: OSTEOMYELITIS
     Dosage: UNK
     Route: 065
  13. CEFTAZIDIME. [Concomitant]
     Active Substance: CEFTAZIDIME
     Indication: PSEUDOMONAS INFECTION
  14. AMIKACIN. [Concomitant]
     Active Substance: AMIKACIN
     Indication: OSTEOMYELITIS
     Dosage: UNK
     Route: 065
  15. LEVOFLOXACIN. [Suspect]
     Active Substance: LEVOFLOXACIN
     Dosage: 300 MG, UNKNOWN
     Route: 042
  16. LEVOFLOXACIN. [Suspect]
     Active Substance: LEVOFLOXACIN
     Indication: STAPHYLOCOCCAL INFECTION
     Dosage: UNK, UNKNOWN
     Route: 048
  17. CEFAZOLIN [Concomitant]
     Active Substance: CEFAZOLIN
     Indication: PRODUCT USED FOR UNKNOWN INDICATION
     Dosage: UNK
     Route: 065
  18. LEVOFLOXACIN. [Suspect]
     Active Substance: LEVOFLOXACIN
     Indication: INFECTION
     Dosage: 50 MG, UNKNOWN
     Route: 042
  19. CEFTAZIDIME. [Concomitant]
     Active Substance: CEFTAZIDIME
     Indication: STAPHYLOCOCCAL INFECTION
  20. LEVOFLOXACIN. [Suspect]
     Active Substance: LEVOFLOXACIN
     Indication: OSTEOMYELITIS
     Dosage: 0.1 MG, UNKNOWN
     Route: 042
  21. LEVOFLOXACIN. [Suspect]
     Active Substance: LEVOFLOXACIN
     Dosage: 3 MG, UNKNOWN
     Route: 042
  22. AMIKACIN. [Concomitant]
     Active Substance: AMIKACIN
     Indication: INFECTION

REACTIONS (3)
  - Therapeutic product effect incomplete [Unknown]
  - Toxic skin eruption [Recovering/Resolving]
  - Condition aggravated [Recovering/Resolving]
